FAERS Safety Report 5646811-6 (Version None)
Quarter: 2008Q1

REPORT INFORMATION
  Report Type: 
  Country: None (occurrence: None)
  Receive Date: 20080131
  Receipt Date: 20071210
  Transmission Date: 20080703
  Serious: Yes (Other)
  Sender: FDA-Public Use
  Company Number: 163-21880-07120099

PATIENT
  Age: 60 Year
  Sex: Female

DRUGS (1)
  1. REVLIMID [Suspect]
     Indication: MULTIPLE MYELOMA
     Dosage: 15 MG, DAILY 3 WEEKS ON, 1 WEEK OFF, ORAL
     Route: 048
     Dates: start: 20070802

REACTIONS (4)
  - BLINDNESS UNILATERAL [None]
  - CARDIAC FUNCTION TEST ABNORMAL [None]
  - LABORATORY TEST ABNORMAL [None]
  - THROMBOSIS [None]
